FAERS Safety Report 8214249-3 (Version None)
Quarter: 2012Q1

REPORT INFORMATION
  Report Type: 
  Country: None (occurrence: None)
  Receive Date: 20120315
  Receipt Date: 20120315
  Transmission Date: 20120608
  Serious: Yes (Hospitalization)
  Sender: FDA-Public Use
  Company Number: None

PATIENT
  Age: 78 Year
  Sex: Male

DRUGS (11)
  1. NPH INSULIN [Concomitant]
  2. CYANOCOBALAMIN [Concomitant]
  3. ATENOLOL [Concomitant]
  4. FERROUS GLUCONATE [Concomitant]
  5. ASPIRIN [Concomitant]
  6. THIAMINE HCL [Concomitant]
  7. OMEPRAZOLE [Concomitant]
  8. FUROSEMIDE [Concomitant]
  9. REGULAR INSULIN [Concomitant]
  10. GLIPIZIDE [Concomitant]
  11. REVLIMID [Suspect]
     Indication: MANTLE CELL LYMPHOMA
     Dosage: 10MG QD X 21/28 DAYS BY MOUTH
     Route: 048
     Dates: start: 20120201, end: 20120301

REACTIONS (6)
  - COUGH [None]
  - CHILLS [None]
  - PYREXIA [None]
  - OEDEMA PERIPHERAL [None]
  - LUNG INFILTRATION [None]
  - SPUTUM DISCOLOURED [None]
